FAERS Safety Report 14700535 (Version 1)
Quarter: 2018Q1

REPORT INFORMATION
  Report Type: Spontaneous
  Country: US (occurrence: US)
  Receive Date: 20180330
  Receipt Date: 20180330
  Transmission Date: 20180509
  Serious: Yes (Hospitalization)
  Sender: FDA-Public Use
  Company Number: US-SA-2018SA088281

PATIENT
  Age: 65 Year
  Sex: Male

DRUGS (2)
  1. CARBOPLATIN. [Suspect]
     Active Substance: CARBOPLATIN
     Route: 065
  2. TAXOTERE [Suspect]
     Active Substance: DOCETAXEL
     Route: 051

REACTIONS (4)
  - Haemoglobin decreased [Recovered/Resolved]
  - Hypotension [Unknown]
  - Thrombocytopenia [Recovered/Resolved]
  - Gastrointestinal haemorrhage [Unknown]
